FAERS Safety Report 6155505-2 (Version None)
Quarter: 2009Q2

REPORT INFORMATION
  Report Type: 
  Country: None (occurrence: None)
  Receive Date: 20090415
  Receipt Date: 20090410
  Transmission Date: 20091009
  Serious: Yes (Other)
  Sender: FDA-Public Use
  Company Number: JP-AVENTIS-200910726JP

PATIENT
  Age: 46 Year
  Sex: Female

DRUGS (2)
  1. ALLEGRA [Suspect]
     Dosage: DOSE: 60 MG X 1 TABLET
     Route: 048
     Dates: start: 20080401, end: 20080401
  2. GARASONE [Concomitant]

REACTIONS (1)
  - LIVER DISORDER [None]
